FAERS Safety Report 7605996-2 (Version None)
Quarter: 2011Q3

REPORT INFORMATION
  Report Type: 
  Country: None (occurrence: None)
  Receive Date: 20110713
  Receipt Date: 20110629
  Transmission Date: 20111222
  Serious: Yes (Hospitalization)
  Sender: FDA-Public Use
  Company Number: PHHY2011AU58448

PATIENT
  Sex: Female
  Weight: 62 kg

DRUGS (4)
  1. CLOZAPINE [Suspect]
     Indication: MAJOR DEPRESSION
     Dosage: 550 MG,DAILY
  2. CLOZAPINE [Suspect]
     Dosage: 600 MG, DAILY
     Route: 048
     Dates: start: 20060101
  3. QUADROPRIL [Concomitant]
     Indication: BIPOLAR DISORDER
     Dosage: 800 MG, UNK
     Route: 048
  4. HAMARIN [Concomitant]
     Dosage: 200 MG, UNK

REACTIONS (1)
  - ANTIPSYCHOTIC DRUG LEVEL BELOW THERAPEUTIC [None]
